FAERS Safety Report 13656925 (Version 1)
Quarter: 2017Q2

REPORT INFORMATION
  Report Type: Spontaneous
  Country: AT (occurrence: AT)
  Receive Date: 20170615
  Receipt Date: 20170615
  Transmission Date: 20170830
  Serious: Yes (Life-Threatening, Hospitalization)
  Sender: FDA-Public Use
  Company Number: AT-ASTRAZENECA-2017SE60886

PATIENT
  Age: 80 Year
  Sex: Male
  Weight: 80 kg

DRUGS (3)
  1. LANTUS [Concomitant]
     Active Substance: INSULIN GLARGINE
     Indication: TYPE 2 DIABETES MELLITUS
  2. APIDRA [Concomitant]
     Active Substance: INSULIN GLULISINE
     Indication: TYPE 2 DIABETES MELLITUS
  3. FORXIGA [Suspect]
     Active Substance: DAPAGLIFLOZIN
     Route: 048
     Dates: start: 2015, end: 20170530

REACTIONS (3)
  - Escherichia urinary tract infection [Recovered/Resolved]
  - Intensive care [Recovered/Resolved]
  - Escherichia sepsis [Recovered/Resolved]

NARRATIVE: CASE EVENT DATE: 20170411
